FAERS Safety Report 9064219 (Version 1)
Quarter: 2013Q1

REPORT INFORMATION
  Report Type: Report from Study
  Country: US (occurrence: US)
  Receive Date: 20130131
  Receipt Date: 20130131
  Transmission Date: 20140127
  Serious: No
  Sender: FDA-Public Use
  Company Number: US-ABBOTT-12P-163-1022140-00

PATIENT
  Sex: Female

DRUGS (2)
  1. HUMIRA [Suspect]
     Indication: CROHN^S DISEASE
     Route: 058
     Dates: end: 20121115
  2. HUMIRA [Suspect]

REACTIONS (3)
  - Rash [Not Recovered/Not Resolved]
  - Rash [Not Recovered/Not Resolved]
  - Rash papular [Not Recovered/Not Resolved]
